FAERS Safety Report 9272950 (Version 1)
Quarter: 2013Q2

REPORT INFORMATION
  Report Type: Spontaneous
  Country: DE (occurrence: DE)
  Receive Date: 20130506
  Receipt Date: 20130506
  Transmission Date: 20140414
  Serious: Yes (Other)
  Sender: FDA-Public Use
  Company Number: DE-PFIZER INC-2013133876

PATIENT
  Age: 32 Year
  Sex: Female
  Weight: 86 kg

DRUGS (5)
  1. IBUPROFEN [Suspect]
     Indication: ANKYLOSING SPONDYLITIS
     Dosage: 1200 MG PER DAY
     Route: 048
  2. IBUPROFEN [Suspect]
     Dosage: 300 MG PER DAY
     Route: 048
     Dates: start: 20120301, end: 20120925
  3. KADEFUNGIN [Suspect]
     Indication: VULVOVAGINAL MYCOTIC INFECTION
     Dosage: 20 MG ONCE A DAY, 10-12 GESTATION WEEK
     Route: 067
     Dates: start: 20120411, end: 20120425
  4. DAIVOBET [Suspect]
     Indication: PSORIASIS
     Dosage: 0-10 GESTATION WEEK
     Route: 003
     Dates: start: 20120201, end: 20120411
  5. FOLIO FORTE [Concomitant]
     Indication: PROPHYLAXIS OF NEURAL TUBE DEFECT
     Dosage: 0.8MG/D TILL 0.4, 0-27 GESTATION WEEK
     Route: 048
     Dates: start: 20120201, end: 20120808

REACTIONS (3)
  - Vaginal haemorrhage [Recovered/Resolved]
  - Oligohydramnios [Not Recovered/Not Resolved]
  - Placental insufficiency [Not Recovered/Not Resolved]
